FAERS Safety Report 12134293 (Version 2)
Quarter: 2016Q1

REPORT INFORMATION
  Report Type: Spontaneous
  Country: JP (occurrence: JP)
  Receive Date: 20160301
  Receipt Date: 20160304
  Transmission Date: 20160526
  Serious: Yes (Other)
  Sender: FDA-Public Use
  Company Number: JP-GLAXOSMITHKLINE-JP2016JPN024834

PATIENT
  Age: 10 Year

DRUGS (1)
  1. RELENZA [Suspect]
     Active Substance: ZANAMIVIR
     Indication: INFLUENZA
     Dosage: UNK
     Route: 055
     Dates: start: 20160218

REACTIONS (3)
  - Hyperthermia [Unknown]
  - Seizure [Unknown]
  - Pallor [Unknown]

NARRATIVE: CASE EVENT DATE: 20160219
